FAERS Safety Report 14303258 (Version 1)
Quarter: 2017Q4

REPORT INFORMATION
  Report Type: Spontaneous
  Country: US (occurrence: US)
  Receive Date: 20171219
  Receipt Date: 20171219
  Transmission Date: 20180321
  Serious: Yes (Other)
  Sender: FDA-Public Use
  Company Number: US-OTSUKA-19502665

PATIENT
  Age: 57 Year
  Sex: Female

DRUGS (3)
  1. TRAZODONE HYDROCHLORIDE. [Concomitant]
     Active Substance: TRAZODONE HYDROCHLORIDE
     Indication: PRODUCT USED FOR UNKNOWN INDICATION
     Dosage: 50 MG, QD
     Route: 065
  2. ABILIFY [Suspect]
     Active Substance: ARIPIPRAZOLE
     Indication: PRODUCT USED FOR UNKNOWN INDICATION
     Dosage: INITIAL DOSE:2.5MG:24AUG13  5MG:27AUG13
     Route: 065
     Dates: start: 20130824
  3. VIIBRYD [Suspect]
     Active Substance: VILAZODONE HYDROCHLORIDE
     Indication: PRODUCT USED FOR UNKNOWN INDICATION
     Dosage: 10MG:30AUG13  20MG:06SEP13  10MG:10SEP13
     Route: 065
     Dates: start: 20130830

REACTIONS (3)
  - Psychomotor hyperactivity [Unknown]
  - Seizure [Unknown]
  - Insomnia [Unknown]

NARRATIVE: CASE EVENT DATE: 201309
